FAERS Safety Report 16490416 (Version 1)
Quarter: 2019Q2

REPORT INFORMATION
  Report Type: Spontaneous
  Country: US (occurrence: US)
  Receive Date: 20190628
  Receipt Date: 20190628
  Transmission Date: 20190711
  Serious: No
  Sender: FDA-Public Use
  Company Number: US-ASTRAZENECA-2019SE82196

PATIENT
  Age: 29159 Day
  Sex: Male
  Weight: 92.5 kg

DRUGS (6)
  1. CRESTOR [Suspect]
     Active Substance: ROSUVASTATIN CALCIUM
     Indication: BLOOD CHOLESTEROL
     Route: 048
     Dates: start: 20190528
  2. ASPIRIN. [Concomitant]
     Active Substance: ASPIRIN
  3. MICARDIS [Concomitant]
     Active Substance: TELMISARTAN
     Indication: BLOOD PRESSURE MEASUREMENT
  4. CRESTOR [Suspect]
     Active Substance: ROSUVASTATIN CALCIUM
     Indication: BLOOD CHOLESTEROL
     Route: 048
     Dates: start: 201803
  5. MULTI VITAMIN [Concomitant]
     Active Substance: VITAMINS
  6. AMLODIPINE [Concomitant]
     Active Substance: AMLODIPINE BESYLATE
     Indication: BLOOD PRESSURE MEASUREMENT

REACTIONS (11)
  - Rhinorrhoea [Recovering/Resolving]
  - Nausea [Recovered/Resolved]
  - Nasal congestion [Recovering/Resolving]
  - Abdominal discomfort [Not Recovered/Not Resolved]
  - Oropharyngeal pain [Recovering/Resolving]
  - Muscular weakness [Not Recovered/Not Resolved]
  - Myalgia [Not Recovered/Not Resolved]
  - Frontal sinus operation [Recovering/Resolving]
  - Decreased appetite [Recovered/Resolved]
  - Dysgeusia [Not Recovered/Not Resolved]
  - Cough [Recovering/Resolving]

NARRATIVE: CASE EVENT DATE: 201904
